FAERS Safety Report 17550234 (Version 1)
Quarter: 2020Q1

REPORT INFORMATION
  Report Type: Spontaneous
  Country: US (occurrence: US)
  Receive Date: 20200317
  Receipt Date: 20200317
  Transmission Date: 20200409
  Serious: Yes (Hospitalization)
  Sender: FDA-Public Use
  Company Number: US-LEADING PHARMA LLC-US-2020LEALIT00036

PATIENT
  Age: 39 Year
  Sex: Male

DRUGS (6)
  1. ALBUMIN [Concomitant]
     Active Substance: ALBUMIN HUMAN
  2. SPIRONOLACTONE. [Suspect]
     Active Substance: SPIRONOLACTONE
  3. DESMOPRESSIN [Interacting]
     Active Substance: DESMOPRESSIN
  4. HYPERTONIC SALINE SOLUTION [Interacting]
     Active Substance: SODIUM CHLORIDE
  5. FUROSEMIDE TABLETS USP [Suspect]
     Active Substance: FUROSEMIDE
  6. ALBUMIN [Interacting]
     Active Substance: ALBUMIN HUMAN

REACTIONS (2)
  - Hyponatraemia [Recovering/Resolving]
  - Hypovolaemia [Recovering/Resolving]
